FAERS Safety Report 21464972 (Version 1)
Quarter: 2022Q4

REPORT INFORMATION
  Report Type: Spontaneous
  Country: US (occurrence: None)
  Receive Date: 20221014
  Receipt Date: 20221014
  Transmission Date: 20230113
  Serious: Yes (Life-Threatening)
  Sender: FDA-Public Use
  Company Number: None

PATIENT
  Age: 38 Year
  Sex: Male
  Weight: 83 kg

DRUGS (2)
  1. VACCINIA IMMUNE GLOBULIN HUMAN [Suspect]
     Active Substance: VACCINIA IMMUNE GLOBULIN HUMAN
     Indication: Monkeypox
     Dosage: FREQUENCY : ONCE;?
     Route: 042
     Dates: start: 20220930
  2. VACCINIA IMMUNE GLOBULIN HUMAN [Suspect]
     Active Substance: VACCINIA IMMUNE GLOBULIN HUMAN
     Indication: Sepsis

REACTIONS (1)
  - Hepatic enzyme increased [None]

NARRATIVE: CASE EVENT DATE: 20221001
